FAERS Safety Report 5934840-4 (Version None)
Quarter: 2008Q4

REPORT INFORMATION
  Report Type: 
  Country: None (occurrence: None)
  Receive Date: 20081027
  Receipt Date: 20081014
  Transmission Date: 20090506
  Serious: Yes (Other)
  Sender: FDA-Public Use
  Company Number: 2008AL011210

PATIENT
  Sex: Female

DRUGS (1)
  1. DIGOXIN [Suspect]
     Dosage: 0.25 MG, PO
     Route: 048
     Dates: start: 20071101

REACTIONS (2)
  - ATRIAL FIBRILLATION [None]
  - HEART VALVE REPLACEMENT [None]
